FAERS Safety Report 9039642 (Version 1)
Quarter: 2013Q1

REPORT INFORMATION
  Report Type: Report from Study
  Country: US (occurrence: US)
  Receive Date: 20130129
  Receipt Date: 20130129
  Transmission Date: 20140127
  Serious: No
  Sender: FDA-Public Use
  Company Number: US-ABBOTT-12P-163-0941054-00

PATIENT
  Age: 47 Year
  Sex: Female

DRUGS (16)
  1. HUMIRA 40 MG/0.8 ML PEN [Suspect]
     Indication: CROHN^S DISEASE
     Dates: start: 20120309
  2. PENTASA [Concomitant]
     Indication: CROHN^S DISEASE
  3. DEXILANT [Concomitant]
     Indication: GASTROOESOPHAGEAL REFLUX DISEASE
  4. METFORMIN [Concomitant]
     Indication: DIABETES MELLITUS
  5. VICTOZA [Concomitant]
     Indication: DIABETES MELLITUS
     Dosage: 1.8MG DAILY
     Route: 058
  6. CRESTOR [Concomitant]
     Indication: BLOOD CHOLESTEROL INCREASED
     Dosage: 20MG DAILY
  7. SINGULAIR [Concomitant]
     Indication: HYPERSENSITIVITY
  8. ASTELIN [Concomitant]
     Indication: HYPERSENSITIVITY
     Dosage: DAILY AS NEEDED
     Route: 045
  9. OMNARIS [Concomitant]
     Indication: HYPERSENSITIVITY
     Dosage: DAILY AS NEEDED
     Route: 045
  10. ALVESCO [Concomitant]
     Indication: HYPERSENSITIVITY
     Route: 055
  11. ALBUTEROL SULFATE NEBULIZER [Concomitant]
     Indication: HYPERSENSITIVITY
  12. IPRATROPIUM BROMIDE [Concomitant]
     Indication: HYPERSENSITIVITY
     Route: 055
  13. VENTOLIN RESCUE INHALER [Concomitant]
     Indication: HYPERSENSITIVITY
     Route: 055
  14. CITALOPRAM [Concomitant]
     Indication: DEPRESSION
  15. CLONAZEPAM [Concomitant]
     Indication: INSOMNIA
  16. OXYCODONE APAP [Concomitant]
     Indication: PAIN
     Dosage: 5/325

REACTIONS (1)
  - Injection site pain [Recovered/Resolved]
